FAERS Safety Report 21582472 (Version 5)
Quarter: 2022Q4

REPORT INFORMATION
  Report Type: Spontaneous
  Country: US (occurrence: US)
  Receive Date: 20221111
  Receipt Date: 20221207
  Transmission Date: 20230113
  Serious: No
  Sender: FDA-Public Use
  Company Number: US-002147023-NVSC2022US253988

PATIENT
  Sex: Female

DRUGS (2)
  1. COMBIPATCH [Suspect]
     Active Substance: ESTRADIOL\NORETHINDRONE ACETATE
     Indication: Premature menopause
     Dosage: UNK (0.05/0.25 MG)
     Route: 062
     Dates: start: 202202
  2. COMBIPATCH [Suspect]
     Active Substance: ESTRADIOL\NORETHINDRONE ACETATE
     Dosage: UNK (0.05/0.25 MG)
     Route: 062

REACTIONS (5)
  - Weight decreased [Unknown]
  - Skin wrinkling [Not Recovered/Not Resolved]
  - Device issue [Unknown]
  - Wrong technique in product usage process [Not Recovered/Not Resolved]
  - Therapeutic product ineffective [Unknown]

NARRATIVE: CASE EVENT DATE: 20220101
